FAERS Safety Report 5611929-0 (Version None)
Quarter: 2008Q1

REPORT INFORMATION
  Report Type: 
  Country: None (occurrence: None)
  Receive Date: 20080131
  Receipt Date: 20080131
  Transmission Date: 20080703
  Serious: Yes (Hospitalization)
  Sender: FDA-Public Use
  Company Number: None

PATIENT
  Sex: Female
  Weight: 58.09 kg

DRUGS (3)
  1. TOPOTECAN [Suspect]
     Dosage: 18.9 MG
  2. DILAUDID [Concomitant]
  3. MORPHINE SULFATE [Concomitant]

REACTIONS (7)
  - ANAEMIA [None]
  - BLADDER PAIN [None]
  - FLANK PAIN [None]
  - POLLAKIURIA [None]
  - RENAL IMPAIRMENT [None]
  - STAPHYLOCOCCAL INFECTION [None]
  - URINE ANALYSIS ABNORMAL [None]
